FAERS Safety Report 23257758 (Version 2)
Quarter: 2024Q1

REPORT INFORMATION
  Report Type: Spontaneous
  Country: MX (occurrence: MX)
  Receive Date: 20231204
  Receipt Date: 20240313
  Transmission Date: 20240410
  Serious: No
  Sender: FDA-Public Use
  Company Number: MX-BECTON DICKINSON-MX-BD-23-000427

PATIENT

DRUGS (1)
  1. CHLORAPREP ONE-STEP FREPP [Suspect]
     Active Substance: CHLORHEXIDINE GLUCONATE\ISOPROPYL ALCOHOL
     Indication: Product used for unknown indication
     Dosage: N/A
     Route: 065

REACTIONS (1)
  - Product contamination physical [Unknown]

NARRATIVE: CASE EVENT DATE: 20231110
